FAERS Safety Report 17068368 (Version 1)
Quarter: 2019Q4

REPORT INFORMATION
  Report Type: Spontaneous
  Country: GB (occurrence: GB)
  Receive Date: 20191123
  Receipt Date: 20191123
  Transmission Date: 20200122
  Serious: Yes (Other)
  Sender: FDA-Public Use
  Company Number: GB-ACCORD-162191

PATIENT
  Age: 68 Year
  Sex: Male
  Weight: 59.9 kg

DRUGS (1)
  1. ACCORD HEALTHCARE QUETIAPINE [Suspect]
     Active Substance: QUETIAPINE FUMARATE
     Indication: DEPRESSION
     Route: 048
     Dates: start: 20190927, end: 20191017

REACTIONS (5)
  - Aggression [Recovered/Resolved with Sequelae]
  - Confusional state [Recovered/Resolved]
  - Product substitution issue [Unknown]
  - Dizziness [Recovered/Resolved]
  - Urinary retention [Recovered/Resolved]

NARRATIVE: CASE EVENT DATE: 20190928
